FAERS Safety Report 11045343 (Version 1)
Quarter: 2015Q2

REPORT INFORMATION
  Report Type: Spontaneous
  Country: CA (occurrence: CA)
  Receive Date: 20150417
  Receipt Date: 20150417
  Transmission Date: 20150821
  Serious: Yes (Death)
  Sender: FDA-Public Use
  Company Number: CA-NOVOPROD-445505

PATIENT
  Age: 58 Year
  Sex: Female
  Weight: 164 kg

DRUGS (1)
  1. VICTOZA [Suspect]
     Active Substance: LIRAGLUTIDE
     Indication: TYPE 2 DIABETES MELLITUS
     Dosage: 1.2 MG, QD
     Route: 058
     Dates: start: 20130930, end: 20150401

REACTIONS (1)
  - Endometrial adenocarcinoma [Fatal]

NARRATIVE: CASE EVENT DATE: 20150205
